FAERS Safety Report 6479543-5 (Version None)
Quarter: 2009Q4

REPORT INFORMATION
  Report Type: 
  Country: None (occurrence: None)
  Receive Date: 20091208
  Receipt Date: 20091130
  Transmission Date: 20100525
  Serious: Yes (Hospitalization, Other)
  Sender: FDA-Public Use
  Company Number: FR-ELI_LILLY_AND_COMPANY-FR200909000468

PATIENT
  Age: 71 Year
  Sex: Female
  Weight: 143.9 kg

DRUGS (10)
  1. BYETTA [Suspect]
     Indication: TYPE 2 DIABETES MELLITUS
     Dosage: 5 UG, 2/D
     Route: 058
     Dates: start: 20090125, end: 20090226
  2. BYETTA [Suspect]
     Dosage: 10 UG, 2/D
     Route: 058
     Dates: start: 20090227, end: 20090429
  3. METFORMIN HCL [Concomitant]
     Indication: DIABETES MELLITUS
     Dosage: 2 G, UNKNOWN
     Route: 065
  4. FLUDEX [Concomitant]
     Dosage: UNK, DAILY (1/D)
  5. TEMERIT                            /01339101/ [Concomitant]
     Dosage: 5 MG, 2/D
  6. KENZEN [Concomitant]
     Dosage: 16 MG, UNK
  7. INEGY [Concomitant]
     Dosage: 40 D/F, DAILY (1/D)
  8. ALLOPURINOL [Concomitant]
     Dosage: 300 MG, DAILY (1/D)
  9. KARDEGIC [Concomitant]
     Dosage: 160 MG, DAILY (1/D)
  10. FUROSEMIDE [Concomitant]
     Dosage: 40 MG, 2/D

REACTIONS (3)
  - DEHYDRATION [None]
  - HYPOPHAGIA [None]
  - RENAL FAILURE ACUTE [None]
